FAERS Safety Report 21020820 (Version 2)
Quarter: 2022Q3

REPORT INFORMATION
  Report Type: Report from Study
  Country: BR (occurrence: BR)
  Receive Date: 20220629
  Receipt Date: 20220708
  Transmission Date: 20221026
  Serious: Yes (Other)
  Sender: FDA-Public Use
  Company Number: BR-JNJFOC-20220648140

PATIENT
  Age: 53 Year
  Sex: Female
  Weight: 41 kg

DRUGS (3)
  1. INFLIXIMAB [Suspect]
     Active Substance: INFLIXIMAB
     Indication: Crohn^s disease
     Route: 041
     Dates: start: 201803, end: 2020
  2. INFLIXIMAB [Suspect]
     Active Substance: INFLIXIMAB
     Route: 041
     Dates: start: 202110
  3. INFLIXIMAB [Suspect]
     Active Substance: INFLIXIMAB
     Indication: Crohn^s disease
     Route: 041
     Dates: start: 202111

REACTIONS (2)
  - Crohn^s disease [Unknown]
  - Weight decreased [Unknown]
